FAERS Safety Report 6172327-7 (Version None)
Quarter: 2009Q2

REPORT INFORMATION
  Report Type: 
  Country: None (occurrence: None)
  Receive Date: 20090424
  Receipt Date: 20081207
  Transmission Date: 20091009
  Serious: No
  Sender: FDA-Public Use
  Company Number: ALL1-2008-03500

PATIENT
  Age: 51 Year
  Sex: Female
  Weight: 57.6 kg

DRUGS (3)
  1. VYVANSE [Suspect]
     Indication: ATTENTION DEFICIT/HYPERACTIVITY DISORDER
     Dosage: 30 MG, 1X/DAY; QD, ORAL
     Route: 048
     Dates: start: 20081206
  2. DEPAKOTE [Concomitant]
  3. CIPRO XR [Concomitant]

REACTIONS (1)
  - NAUSEA [None]
